FAERS Safety Report 6866261-4 (Version None)
Quarter: 2010Q3

REPORT INFORMATION
  Report Type: 
  Country: None (occurrence: None)
  Receive Date: 20100722
  Receipt Date: 20100713
  Transmission Date: 20110219
  Serious: Yes (Hospitalization)
  Sender: FDA-Public Use
  Company Number: GB-JNJFOC-20100704113

PATIENT
  Age: 31 Year
  Sex: Male

DRUGS (3)
  1. PARACETAMOL [Suspect]
     Route: 065
  2. PARACETAMOL [Suspect]
     Indication: PRODUCT USED FOR UNKNOWN INDICATION
     Route: 065
  3. ZAPONEX [Suspect]
     Indication: SCHIZOPHRENIA
     Route: 048

REACTIONS (4)
  - CONFUSIONAL STATE [None]
  - HALLUCINATION, AUDITORY [None]
  - MULTIPLE DRUG OVERDOSE [None]
  - SEDATION [None]
